FAERS Safety Report 13094638 (Version 1)
Quarter: 2017Q1

REPORT INFORMATION
  Report Type: Spontaneous
  Country: US (occurrence: US)
  Receive Date: 20170106
  Receipt Date: 20170106
  Transmission Date: 20170428
  Serious: Yes (Other)
  Sender: FDA-Public Use
  Company Number: US-ELI_LILLY_AND_COMPANY-US201701001896

PATIENT

DRUGS (4)
  1. VITAMIN B12 [Concomitant]
     Active Substance: CYANOCOBALAMIN
     Indication: PREMEDICATION
     Dosage: 0.5 MG, CYCLICAL
     Route: 030
  2. FOLATE [Concomitant]
     Active Substance: FOLATE SODIUM
     Indication: PREMEDICATION
     Dosage: 0.4 MG, QD
     Route: 048
  3. PEMETREXED [Suspect]
     Active Substance: PEMETREXED
     Indication: NEOPLASM MALIGNANT
     Dosage: 2480 MG/M2, CYCLICAL
     Route: 042
  4. DEXAMETHASONE. [Concomitant]
     Active Substance: DEXAMETHASONE
     Indication: PREMEDICATION
     Dosage: 0.1 MG/KG, CYCLICAL
     Route: 065

REACTIONS (8)
  - Diarrhoea [Unknown]
  - Gamma-glutamyltransferase increased [Unknown]
  - Lipase abnormal [Unknown]
  - Hypophosphataemia [Unknown]
  - Hyponatraemia [Unknown]
  - Rectal haemorrhage [Unknown]
  - Thrombocytopenia [Unknown]
  - Hypokalaemia [Unknown]
